FAERS Safety Report 12615724 (Version 2)
Quarter: 2016Q3

REPORT INFORMATION
  Report Type: Spontaneous
  Country: JP (occurrence: JP)
  Receive Date: 20160802
  Receipt Date: 20160817
  Transmission Date: 20161109
  Serious: Yes (Disabling, Other)
  Sender: FDA-Public Use
  Company Number: JP-REGENERON PHARMACEUTICALS, INC.-2014-19891

PATIENT

DRUGS (6)
  1. EYLEA [Suspect]
     Active Substance: AFLIBERCEPT
     Dosage: 0.05 MG, ONCE
     Route: 031
     Dates: start: 20140523, end: 20140523
  2. EYLEA [Suspect]
     Active Substance: AFLIBERCEPT
     Indication: AGE-RELATED MACULAR DEGENERATION
     Dosage: 0.05 MG, ONCE
     Route: 031
     Dates: start: 20130524, end: 20130524
  3. EYLEA [Suspect]
     Active Substance: AFLIBERCEPT
     Indication: OEDEMA
     Dosage: 0.05 MG, ONCE
     Route: 031
     Dates: start: 20130726, end: 20130726
  4. EYLEA [Suspect]
     Active Substance: AFLIBERCEPT
     Dosage: 0.05 MG, ONCE
     Route: 031
     Dates: start: 20140228, end: 20140228
  5. EYLEA [Suspect]
     Active Substance: AFLIBERCEPT
     Dosage: 0.05 MG, ONCE
     Route: 031
     Dates: start: 20130927, end: 20130927
  6. EYLEA [Suspect]
     Active Substance: AFLIBERCEPT
     Dosage: 0.05 MG, ONCE
     Route: 031
     Dates: start: 20131115, end: 20131115

REACTIONS (2)
  - Retinal pigment epithelial tear [Not Recovered/Not Resolved]
  - Retinal pigment epithelial tear [Not Recovered/Not Resolved]

NARRATIVE: CASE EVENT DATE: 20130628
